FAERS Safety Report 10032435 (Version 1)
Quarter: 2014Q1

REPORT INFORMATION
  Report Type: Spontaneous
  Country: AU (occurrence: None)
  Receive Date: 20140320
  Receipt Date: 20140320
  Transmission Date: 20141002
  Serious: Yes (Hospitalization)
  Sender: FDA-Public Use
  Company Number: 2014-AU-000011

PATIENT
  Age: 51 Year
  Sex: Female

DRUGS (2)
  1. ERYTHROMYCIN [Suspect]
     Dosage: 800, DOSAGE UNIT UKNOWN
     Dates: start: 20130926, end: 20130928
  2. ALLOPURINOL [Suspect]
     Dates: start: 20130910, end: 20130926

REACTIONS (5)
  - Drug reaction with eosinophilia and systemic symptoms [None]
  - Abdominal pain [None]
  - Rash [None]
  - Renal impairment [None]
  - Myocarditis [None]
